FAERS Safety Report 6999346-2 (Version None)
Quarter: 2010Q3

REPORT INFORMATION
  Report Type: 
  Country: None (occurrence: None)
  Receive Date: 20100920
  Receipt Date: 20100527
  Transmission Date: 20110219
  Serious: Yes (Hospitalization)
  Sender: FDA-Public Use
  Company Number: US-ASTRAZENECA-2008UW11198

PATIENT
  Age: 609 Month
  Sex: Male
  Weight: 113.4 kg

DRUGS (13)
  1. SEROQUEL [Suspect]
     Indication: DEPRESSION
     Route: 048
     Dates: start: 20021201, end: 20080401
  2. SEROQUEL [Suspect]
     Dosage: 25 TO 200 MG
     Route: 048
     Dates: start: 20021212
  3. LEXAPRO [Concomitant]
  4. ZYPREXA [Concomitant]
     Dates: start: 20021001, end: 20021201
  5. XANAX [Concomitant]
     Dates: start: 20060908
  6. CYMBALTA [Concomitant]
     Dates: start: 20060908
  7. LASIX [Concomitant]
     Dates: start: 20060908
  8. SPIRONOLACTONE [Concomitant]
     Dates: start: 20060908
  9. METHADONE [Concomitant]
     Dates: start: 20060908
  10. EFFEXOR XR [Concomitant]
     Dates: start: 20021212
  11. ZONEGRAN [Concomitant]
     Dates: start: 20030109
  12. TRAMADOL HCL [Concomitant]
     Dates: start: 20030203
  13. DIAZEPAM [Concomitant]
     Dates: start: 20030203

REACTIONS (6)
  - BLOOD CHOLESTEROL INCREASED [None]
  - BLOOD TRIGLYCERIDES INCREASED [None]
  - DEHYDRATION [None]
  - DIABETES MELLITUS [None]
  - LETHARGY [None]
  - OBESITY [None]
